FAERS Safety Report 21360576 (Version 3)
Quarter: 2022Q4

REPORT INFORMATION
  Report Type: Report from Study
  Country: US (occurrence: US)
  Receive Date: 20220921
  Receipt Date: 20221018
  Transmission Date: 20230112
  Serious: Yes (Other)
  Sender: FDA-Public Use
  Company Number: US-ABBVIE-4127162

PATIENT
  Sex: Female

DRUGS (5)
  1. HUMIRA [Suspect]
     Active Substance: ADALIMUMAB
     Indication: Rheumatoid arthritis
     Dosage: CITRATE FREE?FORM STRENGTH: 40 MILLIGRAM
     Route: 058
  2. HUMIRA [Suspect]
     Active Substance: ADALIMUMAB
     Dosage: CITRATE FREE?FORM STRENGTH: 40 MILLIGRAM
     Route: 058
  3. Pfizer/BioNTech [Concomitant]
     Indication: COVID-19 immunisation
     Dosage: 1ST DOSE?1 IN 1 ONCE
     Route: 030
     Dates: start: 20220315, end: 20220315
  4. Pfizer/BioNTech [Concomitant]
     Indication: COVID-19 immunisation
     Dosage: 2ND DOSE?1 IN 1 ONCE
     Route: 030
     Dates: start: 20220415, end: 20220415
  5. Pfizer/BioNTech [Concomitant]
     Indication: COVID-19 immunisation
     Dosage: BOOSTER DOSE
     Route: 030
     Dates: start: 2022, end: 2022

REACTIONS (7)
  - Osteosclerosis [Unknown]
  - Neck pain [Unknown]
  - Arthralgia [Unknown]
  - Pain in extremity [Unknown]
  - Paraesthesia [Unknown]
  - Migraine [Not Recovered/Not Resolved]
  - Intervertebral disc protrusion [Unknown]
